FAERS Safety Report 16437800 (Version 2)
Quarter: 2019Q3

REPORT INFORMATION
  Report Type: Not Available
  Country: US (occurrence: US)
  Receive Date: 20190616
  Receipt Date: 20190701
  Transmission Date: 20191004
  Serious: Yes (Death, Hospitalization, Other)
  Sender: FDA-Public Use
  Company Number: US-NEUROCRINE BIOSCIENCES INC.-2019NBI01614

PATIENT
  Age: 81 Year
  Sex: Male

DRUGS (4)
  1. RISPERIDONE. [Concomitant]
     Active Substance: RISPERIDONE
     Dosage: HALF A TABLET IN THE MORNING AND A FULL TABLET AT NIGHT
     Route: 048
     Dates: start: 20160810
  2. BUPROPION. [Concomitant]
     Active Substance: BUPROPION
     Route: 048
  3. KLONOPIN [Concomitant]
     Active Substance: CLONAZEPAM
     Route: 048
  4. INGREZZA [Suspect]
     Active Substance: VALBENAZINE
     Indication: PRODUCT USED FOR UNKNOWN INDICATION
     Route: 048
     Dates: start: 20170817, end: 20170819

REACTIONS (4)
  - Gait disturbance [Unknown]
  - Fall [Recovered/Resolved]
  - Pneumonia aspiration [Fatal]
  - Tongue biting [Recovered/Resolved]

NARRATIVE: CASE EVENT DATE: 201708
